FAERS Safety Report 23788699 (Version 2)
Quarter: 2024Q3

REPORT INFORMATION
  Report Type: Spontaneous
  Country: JP (occurrence: JP)
  Receive Date: 20240426
  Receipt Date: 20240830
  Transmission Date: 20241016
  Serious: Yes (Death)
  Sender: RIGEL PHARMACEUTICALS
  Company Number: JP-RIGEL PHARMACEUTICALS, INC.-2024FOS000493

PATIENT
  Age: 81 Year
  Sex: Male

DRUGS (2)
  1. TAVALISSE [Suspect]
     Active Substance: FOSTAMATINIB
     Dosage: 200 MG, QD
     Route: 048
     Dates: start: 20231107
  2. TAVALISSE [Suspect]
     Active Substance: FOSTAMATINIB
     Indication: Immune thrombocytopenia

REACTIONS (1)
  - Death [Fatal]
